FAERS Safety Report 16034672 (Version 1)
Quarter: 2019Q1

REPORT INFORMATION
  Report Type: Spontaneous
  Country: US (occurrence: US)
  Receive Date: 20190305
  Receipt Date: 20190305
  Transmission Date: 20190418
  Serious: No
  Sender: FDA-Public Use
  Company Number: US-DRREDDYS-USA/USA/19/0108252

PATIENT
  Sex: Female
  Weight: 57.27 kg

DRUGS (3)
  1. HABITROL [Suspect]
     Active Substance: NICOTINE
     Indication: PRODUCT USED FOR UNKNOWN INDICATION
     Dosage: IN BETWEEN NOVEMBER TO DECEMBER 2018
     Route: 062
  2. HABITROL [Suspect]
     Active Substance: NICOTINE
     Dosage: IN FEBRUARY 2019
     Route: 062
  3. VITAMINS [Concomitant]
     Active Substance: VITAMINS
     Indication: VITAMIN SUPPLEMENTATION

REACTIONS (1)
  - Application site vesicles [Recovering/Resolving]
